FAERS Safety Report 4444821-8 (Version None)
Quarter: 2004Q3

REPORT INFORMATION
  Report Type: 
  Country: None (occurrence: None)
  Receive Date: 20040903
  Receipt Date: 20040826
  Transmission Date: 20050211
  Serious: Yes (Death)
  Sender: FDA-Public Use
  Company Number: 2004AP04541

PATIENT
  Sex: Male

DRUGS (1)
  1. IRESSA [Suspect]
     Dosage: 250 MG DAILY PO
     Route: 048
     Dates: start: 20021127

REACTIONS (3)
  - INTERSTITIAL LUNG DISEASE [None]
  - LIVER DISORDER [None]
  - RESPIRATORY FAILURE [None]
